FAERS Safety Report 25013580 (Version 1)
Quarter: 2025Q1

REPORT INFORMATION
  Report Type: Spontaneous
  Country: GR (occurrence: GR)
  Receive Date: 20250226
  Receipt Date: 20250226
  Transmission Date: 20250409
  Serious: Yes (Other)
  Sender: FERRING
  Company Number: GR-MLMSERVICE-20250219-PI421254-00301-1

PATIENT

DRUGS (1)
  1. SOMATROPIN [Suspect]
     Active Substance: SOMATROPIN
     Indication: Small for dates baby
     Dosage: 0.03 MG/KG, WEEKLY
     Route: 065

REACTIONS (1)
  - Atrioventricular block complete [Recovered/Resolved]
